FAERS Safety Report 15310103 (Version 3)
Quarter: 2018Q3

REPORT INFORMATION
  Report Type: Spontaneous
  Country: US (occurrence: US)
  Receive Date: 20180823
  Receipt Date: 20180907
  Transmission Date: 20181010
  Serious: No
  Sender: FDA-Public Use
  Company Number: US-PFIZER INC-2018336244

PATIENT
  Age: 71 Year
  Sex: Female
  Weight: 58 kg

DRUGS (7)
  1. CALCIUM [Concomitant]
     Active Substance: CALCIUM
     Dosage: UNK [CALCIUM CARBONATE 500 MG] / [VITAMIN D3 250 M]
  2. FISH OIL [Concomitant]
     Active Substance: FISH OIL
     Dosage: 1200 MG, UNK
  3. LETROZOLE. [Concomitant]
     Active Substance: LETROZOLE
     Dosage: 2.5 MG, UNK
  4. ATORVASTATIN [Concomitant]
     Active Substance: ATORVASTATIN
     Dosage: 20 MG, UNK
  5. IBRANCE [Suspect]
     Active Substance: PALBOCICLIB
     Indication: HYPERLIPIDAEMIA
     Dosage: 125 MG, CYCLIC (ONCE IN THE MORNING, EVERY DAY FOR 21 DAYS EVERY 28 DAYS)
     Route: 048
     Dates: start: 20180820
  6. IBRANCE [Suspect]
     Active Substance: PALBOCICLIB
     Indication: BREAST CANCER METASTATIC
  7. HYDROCODONE [Concomitant]
     Active Substance: HYDROCODONE
     Indication: MUSCLE SPASMS
     Dosage: UNK, AS NEEDED [HYDROCODONE 5 MG]/[ACETAMINOPHEN 325MG]

REACTIONS (4)
  - Hot flush [Not Recovered/Not Resolved]
  - Dyspnoea exertional [Not Recovered/Not Resolved]
  - Fatigue [Not Recovered/Not Resolved]
  - Nausea [Not Recovered/Not Resolved]

NARRATIVE: CASE EVENT DATE: 201808
